FAERS Safety Report 4413274-8 (Version None)
Quarter: 2004Q3

REPORT INFORMATION
  Report Type: 
  Country: None (occurrence: None)
  Receive Date: 20040802
  Receipt Date: 20040728
  Transmission Date: 20050211
  Serious: Yes (Death)
  Sender: FDA-Public Use
  Company Number: 200417453GDDC

PATIENT
  Sex: Female

DRUGS (1)
  1. RIFATER [Suspect]
     Indication: DRUG USE FOR UNKNOWN INDICATION
     Dosage: DOSE: UNK

REACTIONS (1)
  - DEATH [None]
